FAERS Safety Report 7053941-3 (Version None)
Quarter: 2010Q4

REPORT INFORMATION
  Report Type: 
  Country: None (occurrence: None)
  Receive Date: 20101020
  Receipt Date: 20101014
  Transmission Date: 20110411
  Serious: Yes (Other)
  Sender: FDA-Public Use
  Company Number: JP-B.I. PHARMACEUTICALS,INC./RIDGEFIELD-2010-BP-11320NB

PATIENT
  Sex: Male

DRUGS (8)
  1. SPIRIVA [Suspect]
     Indication: EMPHYSEMA
     Dosage: 18 MCG
     Route: 055
     Dates: start: 20100511, end: 20100815
  2. ONON [Concomitant]
     Indication: ASTHMA
     Dosage: 450 MG
     Route: 048
     Dates: start: 20100511, end: 20100718
  3. FLUTIDE [Concomitant]
     Indication: ASTHMA
     Dosage: 20 MCG
     Route: 055
     Dates: start: 20100511, end: 20100719
  4. AMLODIPINE [Concomitant]
     Indication: HYPERTENSION
     Dosage: 10 MG
     Route: 048
  5. BLOPRESS [Concomitant]
     Indication: HYPERTENSION
     Dosage: 8 MG
     Route: 048
  6. LOPRESSOR [Concomitant]
     Indication: HYPERTENSION
     Dosage: 40 MG
     Route: 048
  7. MERCAZOLE [Concomitant]
     Indication: BASEDOW'S DISEASE
     Dosage: 2.5 MG
     Route: 048
  8. SELBEX [Concomitant]
     Indication: GASTRITIS
     Dosage: 150 MG
     Route: 048

REACTIONS (2)
  - BRAIN NATRIURETIC PEPTIDE INCREASED [None]
  - CARDIAC FAILURE CONGESTIVE [None]
